FAERS Safety Report 5901461-9 (Version None)
Quarter: 2008Q3

REPORT INFORMATION
  Report Type: 
  Country: None (occurrence: None)
  Receive Date: 20080929
  Receipt Date: 20080729
  Transmission Date: 20090109
  Serious: No
  Sender: FDA-Public Use
  Company Number: US-BAYER-200829966NA

PATIENT
  Age: 44 Year
  Sex: Female

DRUGS (2)
  1. OCELLA [Suspect]
     Indication: MENSTRUATION IRREGULAR
     Route: 048
     Dates: start: 20080713
  2. YASMIN [Suspect]
     Indication: DRUG USE FOR UNKNOWN INDICATION
     Route: 048

REACTIONS (8)
  - ABDOMINAL DISTENSION [None]
  - DIARRHOEA [None]
  - DYSMENORRHOEA [None]
  - GENITAL HAEMORRHAGE [None]
  - NAUSEA [None]
  - POLYMENORRHOEA [None]
  - RETCHING [None]
  - VOMITING [None]
